FAERS Safety Report 24396433 (Version 1)
Quarter: 2024Q4

REPORT INFORMATION
  Report Type: Report from Study
  Country: CA (occurrence: CA)
  Receive Date: 20241004
  Receipt Date: 20241004
  Transmission Date: 20250115
  Serious: Yes (Hospitalization, Other)
  Sender: ALEXION PHARMACEUTICALS
  Company Number: CA-ASTRAZENECA-202409GLO002740CA

PATIENT
  Age: 89 Year

DRUGS (8)
  1. GOSERELIN [Suspect]
     Active Substance: GOSERELIN
     Indication: Product used for unknown indication
     Dosage: 10.8MG /Q12 WEEKS
  2. GOSERELIN [Suspect]
     Active Substance: GOSERELIN
     Dosage: 10.8MG /Q12 WEEKS
  3. GOSERELIN [Suspect]
     Active Substance: GOSERELIN
     Dosage: 10.8MG /Q12 WEEKS
  4. GOSERELIN [Suspect]
     Active Substance: GOSERELIN
     Dosage: 10.8MG /Q12 WEEKS
  5. GOSERELIN [Suspect]
     Active Substance: GOSERELIN
     Indication: Product used for unknown indication
     Dosage: UNK
     Route: 065
  6. GOSERELIN [Suspect]
     Active Substance: GOSERELIN
     Dosage: UNK
  7. GOSERELIN [Suspect]
     Active Substance: GOSERELIN
     Dosage: UNK
     Route: 065
  8. GOSERELIN [Suspect]
     Active Substance: GOSERELIN
     Dosage: UNK

REACTIONS (2)
  - Renal disorder [Unknown]
  - Prostate cancer [Unknown]
